FAERS Safety Report 16788359 (Version 1)
Quarter: 2019Q3

REPORT INFORMATION
  Report Type: Other
  Country: US (occurrence: US)
  Receive Date: 20190910
  Receipt Date: 20190910
  Transmission Date: 20191005
  Serious: Yes (Hospitalization, Other)
  Sender: FDA-Public Use
  Company Number: US-ENCUBE-000002

PATIENT
  Age: 69 Year
  Sex: Female

DRUGS (1)
  1. CLINDAMYCIN. [Suspect]
     Active Substance: CLINDAMYCIN
     Indication: CELLULITIS
     Dosage: 300 MG EVERY 8 HOURS

REACTIONS (6)
  - Acute generalised exanthematous pustulosis [Recovered/Resolved]
  - Acute kidney injury [Recovered/Resolved]
  - Pleural effusion [Unknown]
  - Hypersensitivity vasculitis [Unknown]
  - Respiratory failure [Unknown]
  - Liver function test abnormal [Recovered/Resolved]
